FAERS Safety Report 20840776 (Version 10)
Quarter: 2024Q3

REPORT INFORMATION
  Report Type: Spontaneous
  Country: US (occurrence: US)
  Receive Date: 20220517
  Receipt Date: 20240829
  Transmission Date: 20241017
  Serious: Yes (Hospitalization, Other)
  Sender: PFIZER
  Company Number: US-PFIZER INC-202200655270

PATIENT
  Age: 74 Year
  Sex: Female
  Weight: 75.3 kg

DRUGS (9)
  1. IBRANCE [Suspect]
     Active Substance: PALBOCICLIB
     Indication: Breast cancer metastatic
     Dosage: 125 MG DAILY X 21 DAYS THEN 7 DAYS OFF
     Route: 048
     Dates: start: 202110
  2. IBRANCE [Suspect]
     Active Substance: PALBOCICLIB
     Indication: Breast cancer female
     Dosage: 100MG QD X 21 DAYS, THEN 7 DAYS OFF, THEN REPEAT
     Route: 048
  3. IBRANCE [Suspect]
     Active Substance: PALBOCICLIB
     Indication: Breast cancer female
     Dosage: 1 IBRANCE 100MG EVERY OTHER DAY
     Dates: start: 20240821
  4. IBRANCE [Suspect]
     Active Substance: PALBOCICLIB
     Indication: Peripheral swelling
  5. IBRANCE [Suspect]
     Active Substance: PALBOCICLIB
     Indication: Metastases to bone
  6. IBRANCE [Suspect]
     Active Substance: PALBOCICLIB
     Indication: Metastases to liver
  7. IBRANCE [Suspect]
     Active Substance: PALBOCICLIB
     Indication: Chronic kidney disease
  8. ELIQUIS [Concomitant]
     Active Substance: APIXABAN
     Indication: Cardiac disorder
     Dosage: UNK
  9. FULVESTRANT [Concomitant]
     Active Substance: FULVESTRANT
     Dosage: UNK

REACTIONS (15)
  - Abdominal pain upper [Recovered/Resolved]
  - Weight decreased [Unknown]
  - Platelet count decreased [Not Recovered/Not Resolved]
  - Neoplasm progression [Recovering/Resolving]
  - Iron deficiency anaemia [Unknown]
  - Lymphocyte count decreased [Unknown]
  - Malaise [Unknown]
  - Red blood cell count decreased [Unknown]
  - Haemoglobin decreased [Unknown]
  - Haematocrit decreased [Unknown]
  - Alopecia [Unknown]
  - White blood cell count decreased [Unknown]
  - Neutrophil count decreased [Unknown]
  - Confusional state [Unknown]
  - Off label use [Unknown]

NARRATIVE: CASE EVENT DATE: 20220502
